FAERS Safety Report 6616261-4 (Version None)
Quarter: 2010Q1

REPORT INFORMATION
  Report Type: 
  Country: None (occurrence: None)
  Receive Date: 20100305
  Receipt Date: 20100222
  Transmission Date: 20100710
  Serious: Yes (Hospitalization)
  Sender: FDA-Public Use
  Company Number: DE-ELI_LILLY_AND_COMPANY-DE200903000214

PATIENT
  Sex: Male
  Weight: 96 kg

DRUGS (6)
  1. GEMCITABINE HCL [Suspect]
     Indication: NON-SMALL CELL LUNG CANCER
     Dosage: 1000 MG/M2, ONCE EVERY 3 WEEKS
     Route: 042
     Dates: start: 20090114
  2. CETUXIMAB [Suspect]
     Indication: NON-SMALL CELL LUNG CANCER
     Dosage: 882 MG, DAYS 1, 8 + 15
     Route: 042
     Dates: start: 20090114
  3. CETUXIMAB [Suspect]
     Dosage: 557.5 MG, DAYS 1, 8 + 15
     Route: 042
     Dates: start: 20090121
  4. CETUXIMAB [Suspect]
     Dosage: 532.5 MG, DAYS 1, 8 + 15
     Route: 042
     Dates: start: 20090204
  5. VOLTAREN [Concomitant]
     Dosage: 100 MG, DAILY (1/D)
  6. NEXIUM [Concomitant]
     Dosage: 20 MG, DAILY (1/D)

REACTIONS (2)
  - PNEUMONIA [None]
  - RESPIRATORY FAILURE [None]
